FAERS Safety Report 7243145-3 (Version None)
Quarter: 2011Q1

REPORT INFORMATION
  Report Type: 
  Country: None (occurrence: None)
  Receive Date: 20110125
  Receipt Date: 20110111
  Transmission Date: 20110831
  Serious: Yes (Other)
  Sender: FDA-Public Use
  Company Number: CA-ELI_LILLY_AND_COMPANY-CA201101003031

PATIENT
  Age: 78 Year
  Sex: Female

DRUGS (12)
  1. NEXIUM [Concomitant]
  2. ATIVAN [Concomitant]
  3. CITALOPRAM HYDROBROMIDE [Concomitant]
  4. AMANTADINE HCL [Concomitant]
  5. LIPITOR [Concomitant]
  6. ESTRACE [Concomitant]
  7. PLAVIX [Concomitant]
  8. FORTEO [Suspect]
     Indication: OSTEOPOROSIS
     Dosage: 20 MG, DAILY (1/D)
     Route: 058
     Dates: start: 20100224, end: 20100701
  9. MICARDIS [Concomitant]
  10. FORTEO [Suspect]
     Dosage: 20 UG, DAILY (1/D)
     Route: 058
     Dates: start: 20100801
  11. AMLODIPINE [Concomitant]
  12. SELEGILINE [Concomitant]

REACTIONS (1)
  - TRANSIENT ISCHAEMIC ATTACK [None]
